FAERS Safety Report 10385017 (Version 1)
Quarter: 2014Q3

REPORT INFORMATION
  Report Type: Spontaneous
  Country: JP (occurrence: JP)
  Receive Date: 20140814
  Receipt Date: 20140814
  Transmission Date: 20150326
  Serious: No
  Sender: FDA-Public Use
  Company Number: PHHY2012JP134719

PATIENT

DRUGS (2)
  1. TASIGNA [Suspect]
     Active Substance: NILOTINIB
  2. EPOETIN ALFA [Concomitant]
     Active Substance: ERYTHROPOIETIN

REACTIONS (3)
  - Rash [Unknown]
  - Nail disorder [Unknown]
  - Electrocardiogram QT prolonged [Unknown]
